FAERS Safety Report 21857264 (Version 1)
Quarter: 2023Q1

REPORT INFORMATION
  Report Type: Spontaneous
  Country: FR (occurrence: FR)
  Receive Date: 20230113
  Receipt Date: 20230113
  Transmission Date: 20230417
  Serious: Yes (Other)
  Sender: FDA-Public Use
  Company Number: FR-MERCK-1108FRA00014

PATIENT
  Age: 82 Year
  Sex: Male
  Weight: 77 kg

DRUGS (12)
  1. JANUVIA [Suspect]
     Active Substance: SITAGLIPTIN PHOSPHATE
     Indication: Type 2 diabetes mellitus
     Dosage: 100 MG, QD
     Route: 048
     Dates: start: 20110514, end: 20110519
  2. CELIPROLOL HYDROCHLORIDE [Concomitant]
     Active Substance: CELIPROLOL HYDROCHLORIDE
     Dosage: 10 MILLIGRAM, QAM
  3. FUROSEMIDE [Concomitant]
     Active Substance: FUROSEMIDE
     Dosage: 40 MILLIGRAM, QAM
     Route: 048
  4. GLIMEPIRIDE [Concomitant]
     Active Substance: GLIMEPIRIDE
  5. LERCANIDIPINE [Concomitant]
     Active Substance: LERCANIDIPINE
  6. IRBESARTAN [Concomitant]
     Active Substance: IRBESARTAN
  7. ALLOPURINOL [Concomitant]
     Active Substance: ALLOPURINOL
     Dosage: UNK
  8. CRESTOR [Concomitant]
     Active Substance: ROSUVASTATIN CALCIUM
  9. KARDEGIC [Concomitant]
     Active Substance: ASPIRIN DL-LYSINE
  10. RABEPRAZOLE SODIUM [Concomitant]
     Active Substance: RABEPRAZOLE SODIUM
  11. DAFALGAN [Concomitant]
     Active Substance: ACETAMINOPHEN
     Dosage: AS NEEDED
  12. TETRAZEPAM [Concomitant]
     Active Substance: TETRAZEPAM
     Dosage: AS NEEDED

REACTIONS (3)
  - Tremor [Recovered/Resolved]
  - Headache [Recovered/Resolved]
  - Balance disorder [Recovered/Resolved]

NARRATIVE: CASE EVENT DATE: 20110516
